FAERS Safety Report 19643906 (Version 6)
Quarter: 2022Q1

REPORT INFORMATION
  Report Type: Report from Study
  Country: US (occurrence: US)
  Receive Date: 20210731
  Receipt Date: 20220316
  Transmission Date: 20220423
  Serious: No
  Sender: FDA-Public Use
  Company Number: NVSC2021US169871

PATIENT
  Age: 66 Year
  Sex: Male

DRUGS (2)
  1. ENTRESTO [Suspect]
     Active Substance: SACUBITRIL\VALSARTAN
     Indication: Product used for unknown indication
     Dosage: 1 DF, BID
     Route: 048
  2. ENTRESTO [Suspect]
     Active Substance: SACUBITRIL\VALSARTAN
     Dosage: 1 DF, BID (49/51 MG)
     Route: 048

REACTIONS (9)
  - Visual impairment [Unknown]
  - Blood test abnormal [Unknown]
  - Feeling abnormal [Unknown]
  - Blood sodium increased [Unknown]
  - Weight decreased [Unknown]
  - Pain in extremity [Unknown]
  - Blood sodium decreased [Unknown]
  - Diarrhoea [Unknown]
  - Hypotension [Unknown]
